FAERS Safety Report 13527223 (Version 1)
Quarter: 2017Q2

REPORT INFORMATION
  Report Type: Spontaneous
  Country: TR (occurrence: TR)
  Receive Date: 20170509
  Receipt Date: 20170509
  Transmission Date: 20170830
  Serious: Yes (Other)
  Sender: FDA-Public Use
  Company Number: TR-NORTHSTAR HEALTHCARE HOLDINGS-TR-2017NSR000132

PATIENT

DRUGS (2)
  1. PROPRANOLOL HYDROCHLORIDE. [Suspect]
     Active Substance: PROPRANOLOL HYDROCHLORIDE
     Indication: RETINOPATHY OF PREMATURITY
     Dosage: 0.5 MG/KG PER 6 HOURS
     Route: 048
  2. SALINE [Concomitant]
     Active Substance: SODIUM CHLORIDE
     Indication: PRODUCT USED FOR UNKNOWN INDICATION
     Dosage: 0.5 MG/KG PER 6 HOURS

REACTIONS (1)
  - Neonatal hypotension [Unknown]
